FAERS Safety Report 12179652 (Version 1)
Quarter: 2016Q1

REPORT INFORMATION
  Report Type: Spontaneous
  Country: US (occurrence: US)
  Receive Date: 20160315
  Receipt Date: 20160315
  Transmission Date: 20160526
  Serious: Yes (Hospitalization)
  Sender: FDA-Public Use
  Company Number: US-BEH-2016059910

PATIENT
  Sex: Female
  Weight: 108 kg

DRUGS (32)
  1. XOLAIR [Concomitant]
     Active Substance: OMALIZUMAB
  2. ISOSORBIDE. [Concomitant]
     Active Substance: ISOSORBIDE
  3. ZOFRAN [Concomitant]
     Active Substance: ONDANSETRON HYDROCHLORIDE
  4. ZANTAC [Concomitant]
     Active Substance: RANITIDINE HYDROCHLORIDE
  5. SYNTHROID [Concomitant]
     Active Substance: LEVOTHYROXINE SODIUM
  6. PROVENTIL [Concomitant]
     Active Substance: ALBUTEROL
  7. CATAPRES [Concomitant]
     Active Substance: CLONIDINE HYDROCHLORIDE
  8. BELLADONA [Concomitant]
  9. BENTYL [Concomitant]
     Active Substance: DICYCLOMINE HYDROCHLORIDE
  10. GLEEVEC [Concomitant]
     Active Substance: IMATINIB MESYLATE
  11. DIPHENHYDRAMINE. [Concomitant]
     Active Substance: DIPHENHYDRAMINE
  12. XANAX [Concomitant]
     Active Substance: ALPRAZOLAM
  13. LEXAPRO [Concomitant]
     Active Substance: ESCITALOPRAM OXALATE
  14. BENADRYL [Concomitant]
     Active Substance: DIPHENHYDRAMINE HYDROCHLORIDE
  15. STERILE WATER [Concomitant]
     Active Substance: WATER
  16. PROBIOTIC [Concomitant]
     Active Substance: PROBIOTICS NOS
  17. HIZENTRA [Suspect]
     Active Substance: HUMAN IMMUNOGLOBULIN G
     Indication: ASTHMA
     Dosage: 4 GM 20 ML VIAL
     Route: 058
     Dates: start: 20141210
  18. MACROBID [Concomitant]
     Active Substance: NITROFURANTOIN\NITROFURANTOIN MONOHYDRATE
  19. ACETAMINOPHEN. [Concomitant]
     Active Substance: ACETAMINOPHEN
  20. EPIPEN [Concomitant]
     Active Substance: EPINEPHRINE
  21. SINGULAIR [Concomitant]
     Active Substance: MONTELUKAST SODIUM
  22. PREDNISONE. [Concomitant]
     Active Substance: PREDNISONE
  23. NITROSTAT [Concomitant]
     Active Substance: NITROGLYCERIN
  24. HYDROXYZINE [Concomitant]
     Active Substance: HYDROXYZINE\HYDROXYZINE HYDROCHLORIDE
  25. ADVAIR HFA [Concomitant]
     Active Substance: FLUTICASONE PROPIONATE\SALMETEROL XINAFOATE
  26. WELLBUTRIN [Concomitant]
     Active Substance: BUPROPION HYDROCHLORIDE
  27. MORPHINE [Concomitant]
     Active Substance: MORPHINE
  28. NEXIUM [Concomitant]
     Active Substance: ESOMEPRAZOLE MAGNESIUM
  29. CRESTOR [Concomitant]
     Active Substance: ROSUVASTATIN CALCIUM
  30. CIPRO [Concomitant]
     Active Substance: CIPROFLOXACIN HYDROCHLORIDE
  31. NORVASC [Concomitant]
     Active Substance: AMLODIPINE BESYLATE
  32. GASTROCROM [Concomitant]
     Active Substance: CROMOLYN SODIUM

REACTIONS (2)
  - Oesophageal infection [Unknown]
  - Fungal infection [Unknown]
